FAERS Safety Report 9114887 (Version 1)
Quarter: 2013Q1

REPORT INFORMATION
  Report Type: Spontaneous
  Country: US (occurrence: None)
  Receive Date: 20130220
  Receipt Date: 20130220
  Transmission Date: 20140127
  Serious: Yes (Life-Threatening, Hospitalization)
  Sender: FDA-Public Use
  Company Number: None

PATIENT
  Age: 34 Year
  Sex: Female
  Weight: 50.6 kg

DRUGS (1)
  1. AMIODARONE [Suspect]
     Route: 042

REACTIONS (4)
  - Chest pain [None]
  - Headache [None]
  - Cardio-respiratory arrest [None]
  - Unresponsive to stimuli [None]
